FAERS Safety Report 4674122-4 (Version None)
Quarter: 2005Q2

REPORT INFORMATION
  Report Type: 
  Country: None (occurrence: None)
  Receive Date: 20050524
  Receipt Date: 20050524
  Transmission Date: 20051028
  Serious: Yes (Other)
  Sender: FDA-Public Use
  Company Number: None

PATIENT
  Sex: Male
  Weight: 27 kg

DRUGS (1)
  1. CEFZIL [Suspect]
     Indication: OTITIS MEDIA ACUTE
     Dosage: 250MG   BID   ORAL
     Route: 048
     Dates: start: 20050513, end: 20050520

REACTIONS (1)
  - URTICARIA GENERALISED [None]
